FAERS Safety Report 16692055 (Version 1)
Quarter: 2019Q3

REPORT INFORMATION
  Report Type: Spontaneous
  Country: KR (occurrence: KR)
  Receive Date: 20190812
  Receipt Date: 20190812
  Transmission Date: 20191004
  Serious: Yes (Other)
  Sender: FDA-Public Use
  Company Number: KR-ALLERGAN-1932587US

PATIENT
  Sex: Male
  Weight: 7.3 kg

DRUGS (4)
  1. URSODEOXYCHOLIC ACID UNK [Suspect]
     Active Substance: URSODIOL
     Indication: HEPATIC FIBROSIS
  2. VITAMINS NOS [Concomitant]
     Active Substance: VITAMINS
     Indication: HEPATITIS CHOLESTATIC
  3. VITAMINS NOS [Concomitant]
     Active Substance: VITAMINS
     Indication: HEPATIC FIBROSIS
  4. URSODEOXYCHOLIC ACID UNK [Suspect]
     Active Substance: URSODIOL
     Indication: HEPATITIS CHOLESTATIC
     Dosage: 15 MG/KG, QD
     Route: 065

REACTIONS (3)
  - Off label use [Unknown]
  - Drug ineffective for unapproved indication [Unknown]
  - Hepatic failure [Recovered/Resolved]
